FAERS Safety Report 6814597-5 (Version None)
Quarter: 2010Q2

REPORT INFORMATION
  Report Type: 
  Country: None (occurrence: None)
  Receive Date: 20100629
  Receipt Date: 20100618
  Transmission Date: 20101027
  Serious: Yes (Other)
  Sender: FDA-Public Use
  Company Number: FR-1182332

PATIENT
  Age: 56 Year
  Sex: Female

DRUGS (3)
  1. AZOPT [Suspect]
     Dosage: OPHTHALMIC
     Route: 047
     Dates: start: 20100601
  2. FUROSEMIDE [Concomitant]
  3. GLYCEROL 2.6% [Concomitant]

REACTIONS (2)
  - AMNESIA [None]
  - DYSGEUSIA [None]
